FAERS Safety Report 10023267 (Version 1)
Quarter: 2014Q1

REPORT INFORMATION
  Report Type: Spontaneous
  Country: US (occurrence: US)
  Receive Date: 20140320
  Receipt Date: 20140320
  Transmission Date: 20141002
  Serious: No
  Sender: FDA-Public Use
  Company Number: US-BIOGENIDEC-2014BI025692

PATIENT
  Sex: Female

DRUGS (1)
  1. TYSABRI [Suspect]
     Indication: MULTIPLE SCLEROSIS
     Route: 042
     Dates: start: 20131107

REACTIONS (5)
  - Nasal ulcer [Unknown]
  - Stomatitis [Unknown]
  - Epistaxis [Unknown]
  - Hypoaesthesia [Unknown]
  - Urinary tract infection [Unknown]
